FAERS Safety Report 7205333-1 (Version None)
Quarter: 2010Q4

REPORT INFORMATION
  Report Type: 
  Country: None (occurrence: None)
  Receive Date: 20101231
  Receipt Date: 20101224
  Transmission Date: 20110411
  Serious: Yes (Hospitalization)
  Sender: FDA-Public Use
  Company Number: JP-PFIZER INC-2010158052

PATIENT
  Age: 80 Year
  Sex: Female
  Weight: 42 kg

DRUGS (10)
  1. AZULFIDINE [Suspect]
     Indication: RHEUMATOID ARTHRITIS
     Dosage: 250 MG, 2X/DAY
     Route: 048
     Dates: start: 20100819, end: 20100823
  2. AZULFIDINE [Suspect]
     Dosage: 750 MG, 1X/DAY
     Route: 048
     Dates: start: 20100824, end: 20100827
  3. AZULFIDINE [Suspect]
     Dosage: 1000 MG, 1X/DAY
     Route: 048
     Dates: start: 20100828, end: 20100901
  4. AZULFIDINE [Suspect]
     Dosage: 1250 MG, 1X/DAY
     Route: 048
     Dates: start: 20100902, end: 20100905
  5. ASPIRIN [Concomitant]
     Indication: ESSENTIAL THROMBOCYTHAEMIA
     Dosage: 100 MG, 1X/DAY
     Route: 048
     Dates: start: 20100812, end: 20100905
  6. RIMATIL [Concomitant]
     Indication: RHEUMATOID ARTHRITIS
     Dosage: 150 MG, DAILY
     Route: 048
     Dates: start: 20090716, end: 20100905
  7. RIMATIL [Concomitant]
     Dosage: 100 MG, DAILY
     Route: 048
     Dates: start: 20101028, end: 20101110
  8. RIMATIL [Concomitant]
     Dosage: 150 MG, DAILY
     Route: 048
     Dates: start: 20101111, end: 20101117
  9. RIMATIL [Concomitant]
     Dosage: 200 MG, DAILY
     Route: 048
     Dates: start: 20101118
  10. CELECOXIB [Concomitant]
     Indication: RHEUMATOID ARTHRITIS
     Dosage: 200 MG, 2X/DAY
     Route: 048
     Dates: start: 20090716, end: 20100905

REACTIONS (3)
  - JAUNDICE [None]
  - LIVER DISORDER [None]
  - PYREXIA [None]
